FAERS Safety Report 8049298-1 (Version None)
Quarter: 2012Q1

REPORT INFORMATION
  Report Type: 
  Country: None (occurrence: None)
  Receive Date: 20120117
  Receipt Date: 20120113
  Transmission Date: 20120608
  Serious: Yes (Other)
  Sender: FDA-Public Use
  Company Number: US-ROCHE-1030297

PATIENT
  Sex: Male

DRUGS (5)
  1. PEGASYS [Suspect]
     Dates: start: 20111001
  2. INCIVEK [Concomitant]
     Indication: HEPATITIS C
     Dates: start: 20111001
  3. RIBAVIRIN [Suspect]
     Indication: HEPATITIS C
     Route: 048
     Dates: start: 20050501, end: 20060101
  4. RIBAVIRIN [Suspect]
     Dates: start: 20111001
  5. PEGASYS [Suspect]
     Indication: HEPATITIS C
     Route: 058
     Dates: start: 20050501, end: 20060101

REACTIONS (3)
  - ACCIDENTAL EXPOSURE [None]
  - DRUG ADMINISTRATION ERROR [None]
  - HEPATITIS C RNA INCREASED [None]
